FAERS Safety Report 4516861-1 (Version None)
Quarter: 2004Q4

REPORT INFORMATION
  Report Type: 
  Country: None (occurrence: None)
  Receive Date: 20041202
  Receipt Date: 20041122
  Transmission Date: 20050328
  Serious: Yes (Other)
  Sender: FDA-Public Use
  Company Number: GB-GLAXOSMITHKLINE-B0358698A

PATIENT
  Age: 40 Year
  Sex: Female

DRUGS (2)
  1. COMBIVIR [Suspect]
     Dosage: 900MG PER DAY
     Route: 048
     Dates: start: 20030520
  2. EFAVIRENZ [Suspect]
     Dosage: 600MG PER DAY
     Route: 048
     Dates: start: 20030520

REACTIONS (2)
  - ABORTION SPONTANEOUS [None]
  - DRUG EXPOSURE DURING PREGNANCY [None]
